FAERS Safety Report 9816861 (Version 1)
Quarter: 2014Q1

REPORT INFORMATION
  Report Type: Spontaneous
  Country: US (occurrence: US)
  Receive Date: 20140114
  Receipt Date: 20140114
  Transmission Date: 20141002
  Serious: Yes (Death)
  Sender: FDA-Public Use
  Company Number: US-PFIZER INC-2014008236

PATIENT
  Age: 11 Month
  Sex: Male

DRUGS (1)
  1. NIFEDIPINE [Suspect]
     Dosage: 10 MG, UNK
     Route: 048

REACTIONS (3)
  - Accidental exposure to product by child [Fatal]
  - Cardiac arrest [Fatal]
  - Respiratory arrest [Fatal]
